FAERS Safety Report 5832333-6 (Version None)
Quarter: 2008Q3

REPORT INFORMATION
  Report Type: 
  Country: None (occurrence: None)
  Receive Date: 20080804
  Receipt Date: 20080729
  Transmission Date: 20090109
  Serious: Yes (Life-Threatening, Hospitalization)
  Sender: FDA-Public Use
  Company Number: B0530966A

PATIENT
  Age: 67 Year
  Sex: Female
  Weight: 107 kg

DRUGS (4)
  1. RYTMONORM [Suspect]
     Dosage: 300MG THREE TIMES PER DAY
     Route: 048
     Dates: start: 20080707, end: 20080708
  2. ISOPTIN [Suspect]
     Dosage: 240MG PER DAY
     Route: 048
     Dates: start: 20080707, end: 20080708
  3. METOPROLOL SUCCINATE [Concomitant]
     Dosage: 100MG PER DAY
     Dates: start: 20080707, end: 20080708
  4. DIGOXIN [Concomitant]
     Dosage: .25MG PER DAY
     Dates: start: 20080707, end: 20080708

REACTIONS (6)
  - ASTHENIA [None]
  - ATRIAL FIBRILLATION [None]
  - BRADYCARDIA [None]
  - DIZZINESS [None]
  - DRUG INTERACTION [None]
  - HYPOTENSION [None]
